FAERS Safety Report 9367332 (Version 1)
Quarter: 2013Q2

REPORT INFORMATION
  Report Type: Spontaneous
  Country: IT (occurrence: IT)
  Receive Date: 20130625
  Receipt Date: 20130625
  Transmission Date: 20140414
  Serious: Yes (Other)
  Sender: FDA-Public Use
  Company Number: IT-TEVA-413223ISR

PATIENT
  Age: 67 Year
  Sex: Male

DRUGS (3)
  1. RAMIPRIL [Suspect]
     Dosage: 50 MILLIGRAM DAILY;
     Route: 048
     Dates: start: 20130507, end: 20130507
  2. HALCION [Suspect]
     Dosage: 9 DOSAGE FORMS DAILY;
     Route: 048
     Dates: start: 20130507, end: 20130507
  3. CARDIOASPIRIN [Suspect]
     Dosage: 5 DOSAGE FORMS DAILY; GASTRO-RESISTANT TABLETS
     Route: 048
     Dates: start: 20130507, end: 20130507

REACTIONS (2)
  - Sopor [Recovering/Resolving]
  - Drug abuse [Recovering/Resolving]
